FAERS Safety Report 23518349 (Version 1)
Quarter: 2024Q1

REPORT INFORMATION
  Report Type: Spontaneous
  Country: US (occurrence: None)
  Receive Date: 20240213
  Receipt Date: 20240213
  Transmission Date: 20240410
  Serious: Yes (Hospitalization)
  Sender: FDA-Public Use
  Company Number: None

PATIENT
  Age: 50 Year
  Sex: Female

DRUGS (4)
  1. AFINITOR [Suspect]
     Active Substance: EVEROLIMUS
     Indication: Carcinoid tumour of the small bowel
     Dosage: FREQUENCY : DAILY;?
     Route: 048
     Dates: start: 2024
  2. DEXAMETHASON CON [Concomitant]
  3. MIRTAZAPINE [Concomitant]
     Active Substance: MIRTAZAPINE
  4. MORPHINE SULFATE [Concomitant]
     Active Substance: MORPHINE SULFATE

REACTIONS (3)
  - Pain [None]
  - Obstruction [None]
  - Therapy interrupted [None]

NARRATIVE: CASE EVENT DATE: 20240101
